FAERS Safety Report 7355207-0 (Version None)
Quarter: 2011Q1

REPORT INFORMATION
  Report Type: 
  Country: None (occurrence: None)
  Receive Date: 20110316
  Receipt Date: 20110307
  Transmission Date: 20110831
  Serious: Yes (Hospitalization, Other)
  Sender: FDA-Public Use
  Company Number: US-ELI_LILLY_AND_COMPANY-US201102001075

PATIENT
  Age: 76 Year
  Sex: Female

DRUGS (12)
  1. ISOSORBIDE DINITRATE [Concomitant]
  2. EFFIENT [Suspect]
     Indication: STENT PLACEMENT
     Dosage: 10 MG, UNKNOWN
     Dates: start: 20101120, end: 20110131
  3. METOPROLOL SUCCINATE [Concomitant]
  4. TRANDOLAPRIL [Concomitant]
  5. NORVASC [Concomitant]
  6. BETA BLOCKING AGENTS [Concomitant]
  7. PEPCID [Concomitant]
  8. POTASSIUM [Concomitant]
  9. ACE INHIBITORS [Concomitant]
  10. CELEBREX [Concomitant]
  11. LOVASTATIN [Concomitant]
  12. K-CONTIN CONTINUS [Concomitant]

REACTIONS (5)
  - RASH [None]
  - SWOLLEN TONGUE [None]
  - DYSPNOEA [None]
  - PALPITATIONS [None]
  - TONGUE PIGMENTATION [None]
